FAERS Safety Report 7541039-7 (Version None)
Quarter: 2011Q2

REPORT INFORMATION
  Report Type: 
  Country: None (occurrence: None)
  Receive Date: 20110610
  Receipt Date: 20101022
  Transmission Date: 20111010
  Serious: No
  Sender: FDA-Public Use
  Company Number: A0888320A

PATIENT
  Sex: Female

DRUGS (3)
  1. NEOSPORIN [Suspect]
     Route: 065
  2. ANTIBIOTIC [Concomitant]
     Route: 048
  3. ALTABAX [Suspect]
     Route: 061

REACTIONS (2)
  - SKIN REACTION [None]
  - ERYTHEMA [None]
